FAERS Safety Report 12673728 (Version 3)
Quarter: 2016Q3

REPORT INFORMATION
  Report Type: Report from Study
  Country: US (occurrence: US)
  Receive Date: 20160822
  Receipt Date: 20160909
  Transmission Date: 20161109
  Serious: Yes (Disabling, Other)
  Sender: FDA-Public Use
  Company Number: US-GILEAD-2016-0228605

PATIENT
  Age: 34 Year
  Sex: Male
  Weight: 117.91 kg

DRUGS (6)
  1. REGLAN [Concomitant]
     Active Substance: METOCLOPRAMIDE HYDROCHLORIDE
     Indication: NAUSEA
     Dosage: 10 MG, UNK
     Route: 048
     Dates: start: 20150819
  2. ZOLPIDEM [Concomitant]
     Active Substance: ZOLPIDEM\ZOLPIDEM TARTRATE
     Indication: INSOMNIA
     Dosage: 10 MG, UNK
     Route: 048
     Dates: start: 20111010
  3. LEDIPASVIR/SOFOSBUVIR [Suspect]
     Active Substance: LEDIPASVIR\SOFOSBUVIR
     Indication: CHRONIC HEPATITIS C
     Dosage: 1 DF, QD
     Route: 048
     Dates: start: 20160804
  4. KLONOPIN [Concomitant]
     Active Substance: CLONAZEPAM
     Indication: ANXIETY
     Dosage: 1 MG, UNK
     Route: 048
     Dates: start: 20150819
  5. GABAPENTIN. [Concomitant]
     Active Substance: GABAPENTIN
     Indication: PAIN
     Dosage: 300 MG, UNK
     Dates: start: 20151119
  6. TRAMADOL. [Concomitant]
     Active Substance: TRAMADOL
     Indication: PAIN
     Dosage: 50 MG, UNK
     Route: 048
     Dates: start: 20111010

REACTIONS (18)
  - Drug withdrawal syndrome [Unknown]
  - Dizziness [Unknown]
  - Headache [Unknown]
  - Haematemesis [Recovered/Resolved]
  - Haematochezia [Unknown]
  - Wound [Unknown]
  - Irritability [Not Recovered/Not Resolved]
  - Nausea [Unknown]
  - Depression [Not Recovered/Not Resolved]
  - Disturbance in attention [Not Recovered/Not Resolved]
  - Anxiety [Recovered/Resolved]
  - Frustration tolerance decreased [Unknown]
  - Fatigue [Unknown]
  - Emotional disorder [Recovered/Resolved]
  - Disorientation [Unknown]
  - Dyspnoea [Unknown]
  - Vomiting [Not Recovered/Not Resolved]
  - Insomnia [Unknown]

NARRATIVE: CASE EVENT DATE: 20160804
